FAERS Safety Report 8073030-9 (Version None)
Quarter: 2011Q4

REPORT INFORMATION
  Report Type: 
  Country: None (occurrence: None)
  Receive Date: 20111221
  Receipt Date: 20101220
  Transmission Date: 20120403
  Serious: Yes (Disabling, Other)
  Sender: FDA-Public Use
  Company Number: PHHY2009US66481

PATIENT
  Age: 38 Year
  Sex: Female
  Weight: 58 kg

DRUGS (3)
  1. EXJADE [Suspect]
     Indication: IRON OVERLOAD
     Dosage: 1000 MG, QD, ORAL ; 1100 MG DAILY, ORAL
     Route: 048
     Dates: start: 20090624
  2. EXJADE [Suspect]
     Indication: IRON OVERLOAD
     Dosage: 1000 MG, QD, ORAL ; 1100 MG DAILY, ORAL
     Route: 048
     Dates: start: 20090713, end: 20100307
  3. FOLIC ACID [Concomitant]

REACTIONS (4)
  - SERUM FERRITIN INCREASED [None]
  - RENAL IMPAIRMENT [None]
  - BLOOD CREATININE INCREASED [None]
  - DIARRHOEA [None]
